FAERS Safety Report 12326388 (Version 1)
Quarter: 2016Q2

REPORT INFORMATION
  Report Type: Spontaneous
  Country: US (occurrence: US)
  Receive Date: 20160503
  Receipt Date: 20160503
  Transmission Date: 20160815
  Serious: Yes (Other)
  Sender: FDA-Public Use
  Company Number: GXBR2016US001707

PATIENT
  Age: 54 Year
  Sex: Male

DRUGS (1)
  1. ENOXAPARIN SODIUM. [Suspect]
     Active Substance: ENOXAPARIN SODIUM
     Indication: PRODUCT USED FOR UNKNOWN INDICATION
     Dosage: UNK DF, UNK
     Route: 065

REACTIONS (7)
  - Thrombocytopenia [Unknown]
  - Oedema peripheral [Unknown]
  - Abdominal pain [Unknown]
  - Disseminated intravascular coagulation [Unknown]
  - Deep vein thrombosis [Unknown]
  - Erectile dysfunction [Unknown]
  - Disease progression [Unknown]
